FAERS Safety Report 4615468-5 (Version None)
Quarter: 2005Q1

REPORT INFORMATION
  Report Type: 
  Country: None (occurrence: None)
  Receive Date: 20050317
  Receipt Date: 20050304
  Transmission Date: 20050727
  Serious: Yes (Hospitalization)
  Sender: FDA-Public Use
  Company Number: 2005041459

PATIENT
  Age: 66 Year
  Sex: Female

DRUGS (9)
  1. ZOLOFT [Suspect]
     Indication: DEPRESSION
     Dosage: 75 MG, ORAL
     Route: 048
     Dates: start: 20040224, end: 20040325
  2. ACETYLSALICYLIC (ACETYLSALICYLIC ACID) [Concomitant]
  3. VERAPAMIL HCL [Concomitant]
  4. CALAMINE/CAMPHOR/DIPHENHYDRAMINE (CALAMINE, CAMPHOR, DIPHENHYDRAMINE) [Concomitant]
  5. COLECALCIFEROL (COLECALCIFEROL) [Concomitant]
  6. DIDRONEL  PMO  NORXICH EATON   (CALCIUM CARBONATE, ETIDRONATE DISODIUM [Concomitant]
  7. TOLPERISONE (TOLPERISONE) [Concomitant]
  8. LORMETAZEPAM (LORMETAZEPAM) [Concomitant]
  9. ALPRAZOLAM [Concomitant]

REACTIONS (1)
  - DYSGEUSIA [None]
